FAERS Safety Report 7303642-9 (Version None)
Quarter: 2011Q1

REPORT INFORMATION
  Report Type: 
  Country: None (occurrence: None)
  Receive Date: 20110221
  Receipt Date: 20110209
  Transmission Date: 20110831
  Serious: Yes (Hospitalization)
  Sender: FDA-Public Use
  Company Number: US-AMGEN-USASP2011005892

PATIENT
  Age: 62 Year
  Sex: Female
  Weight: 70.295 kg

DRUGS (23)
  1. SELENIUM [Concomitant]
  2. CLONAZEPAM [Concomitant]
  3. ENBREL [Suspect]
     Indication: RHEUMATOID ARTHRITIS
     Dosage: 50 MG, QWK
     Route: 058
     Dates: start: 20090413, end: 20101213
  4. COD LIVER OIL [Concomitant]
  5. TURMERIC [Concomitant]
  6. TRAMADOL HCL [Concomitant]
  7. RHINOCORT [Concomitant]
  8. VITAMIN B-12 [Concomitant]
  9. TRIAMTERENE [Concomitant]
  10. CENTRUM SILVER                     /01292501/ [Concomitant]
  11. ATENOLOL [Concomitant]
  12. ZOLOFT [Concomitant]
  13. HYDROXYZINE [Concomitant]
  14. TRICOR [Concomitant]
  15. ZETIA [Concomitant]
  16. PATANOL [Concomitant]
  17. PLAQUENIL [Concomitant]
  18. PRILOSEC [Concomitant]
  19. FOLIC ACID [Concomitant]
  20. OS-CAL + D [Concomitant]
  21. KLONOPIN [Concomitant]
  22. LUNESTA [Concomitant]
  23. ALIGN [Concomitant]

REACTIONS (13)
  - CHOLECYSTITIS CHRONIC [None]
  - GASTROOESOPHAGEAL REFLUX DISEASE [None]
  - NASAL DISORDER [None]
  - GASTRIC HYPOMOTILITY [None]
  - NAUSEA [None]
  - DIARRHOEA [None]
  - ADENOMYOSIS [None]
  - INCISION SITE PAIN [None]
  - GASTRITIS [None]
  - REFLUX GASTRITIS [None]
  - HYPERLIPIDAEMIA [None]
  - RHEUMATOID ARTHRITIS [None]
  - COLITIS [None]
